FAERS Safety Report 5376539-1 (Version None)
Quarter: 2007Q2

REPORT INFORMATION
  Report Type: 
  Country: None (occurrence: None)
  Receive Date: 20070629
  Receipt Date: 20070613
  Transmission Date: 20071010
  Serious: Yes (Life-Threatening, Hospitalization)
  Sender: FDA-Public Use
  Company Number: DSA_30105_2007

PATIENT
  Sex: Male

DRUGS (3)
  1. TAVOR/00273201/(TAVOR) [Suspect]
     Dosage: ORAL
     Route: 048
     Dates: start: 20070612, end: 20070612
  2. AMOXICILLIN [Suspect]
     Dosage: ORAL
     Route: 048
     Dates: start: 20070612, end: 20070612
  3. ANTIDEPRESSANTS (ANTIDEPRESSANT) [Suspect]
     Dates: start: 20070612, end: 20070612

REACTIONS (5)
  - DIPLOPIA [None]
  - FATIGUE [None]
  - MULTIPLE DRUG OVERDOSE INTENTIONAL [None]
  - MYDRIASIS [None]
  - SUICIDE ATTEMPT [None]
